FAERS Safety Report 8328403-3 (Version None)
Quarter: 2012Q2

REPORT INFORMATION
  Report Type: 
  Country: None (occurrence: None)
  Receive Date: 20120502
  Receipt Date: 20100819
  Transmission Date: 20120825
  Serious: No
  Sender: FDA-Public Use
  Company Number: US-TEVA-2010003646

PATIENT
  Sex: Female

DRUGS (2)
  1. ASPARTAME [Suspect]
     Dates: end: 20100101
  2. NUVIGIL [Interacting]
     Dosage: 250 MILLIGRAM;
     Route: 048

REACTIONS (4)
  - ANXIETY [None]
  - ANGER [None]
  - DRUG EFFECT DECREASED [None]
  - DRUG INTERACTION [None]
